FAERS Safety Report 25202210 (Version 1)
Quarter: 2025Q2

REPORT INFORMATION
  Report Type: Spontaneous
  Country: AR (occurrence: AR)
  Receive Date: 20250416
  Receipt Date: 20250416
  Transmission Date: 20250717
  Serious: Yes (Death, Hospitalization, Other)
  Sender: SANDOZ
  Company Number: AR-002147023-NVSC2025AR042052

PATIENT
  Age: 70 Year
  Sex: Female

DRUGS (4)
  1. KISQALI [Suspect]
     Active Substance: RIBOCICLIB SUCCINATE
     Indication: Breast cancer metastatic
     Route: 065
     Dates: start: 20240509
  2. KISQALI [Suspect]
     Active Substance: RIBOCICLIB SUCCINATE
     Route: 065
  3. LETROZOLE [Suspect]
     Active Substance: LETROZOLE
     Indication: Breast cancer metastatic
     Route: 065
  4. ZOLEDRONIC ACID [Suspect]
     Active Substance: ZOLEDRONIC ACID
     Indication: Breast cancer metastatic
     Route: 065

REACTIONS (6)
  - Cardio-respiratory arrest [Fatal]
  - Breast cancer [Fatal]
  - Dysuria [Recovering/Resolving]
  - General physical health deterioration [Recovering/Resolving]
  - Abdominal pain [Recovering/Resolving]
  - Dyspnoea [Unknown]

NARRATIVE: CASE EVENT DATE: 20250223
